FAERS Safety Report 17368858 (Version 2)
Quarter: 2020Q1

REPORT INFORMATION
  Report Type: Spontaneous
  Country: HU (occurrence: HU)
  Receive Date: 20200204
  Receipt Date: 20200218
  Transmission Date: 20200409
  Serious: Yes (Other)
  Sender: FDA-Public Use
  Company Number: NVSC2019HU086905

PATIENT
  Age: 74 Year
  Sex: Male

DRUGS (1)
  1. DEXAMETHASONE,TOBRAMYCIN [Suspect]
     Active Substance: DEXAMETHASONE\TOBRAMYCIN
     Indication: VITRECTOMY
     Dosage: UNK, TID
     Route: 065

REACTIONS (2)
  - Macular degeneration [Unknown]
  - Macular hole [Unknown]
